FAERS Safety Report 8184038-7 (Version None)
Quarter: 2012Q1

REPORT INFORMATION
  Report Type: 
  Country: None (occurrence: None)
  Receive Date: 20120305
  Receipt Date: 20120227
  Transmission Date: 20120608
  Serious: Yes (Death, Other)
  Sender: FDA-Public Use
  Company Number: CHPA2012US003703

PATIENT
  Age: 38 Year
  Sex: Female

DRUGS (1)
  1. ACETAMINOPHEN, DIPHENHYDRAMINE CITRATE [Suspect]
     Dosage: UNK, UNK
     Route: 048

REACTIONS (22)
  - ASPARTATE AMINOTRANSFERASE INCREASED [None]
  - BLOOD CREATINE PHOSPHOKINASE INCREASED [None]
  - INTERNATIONAL NORMALISED RATIO INCREASED [None]
  - HYPOGLYCAEMIA [None]
  - INTESTINAL PERFORATION [None]
  - HYPOTHERMIA [None]
  - HYPOTENSION [None]
  - COMPLETED SUICIDE [None]
  - CARDIAC ARREST [None]
  - TACHYCARDIA [None]
  - ALANINE AMINOTRANSFERASE INCREASED [None]
  - TOXICITY TO VARIOUS AGENTS [None]
  - GASTROINTESTINAL NECROSIS [None]
  - COMA [None]
  - BLOOD BILIRUBIN INCREASED [None]
  - INTENTIONAL OVERDOSE [None]
  - HYPERTENSION [None]
  - ENCEPHALOPATHY [None]
  - BLOOD CREATININE INCREASED [None]
  - WHITE BLOOD CELL COUNT INCREASED [None]
  - MYDRIASIS [None]
  - OCULAR ICTERUS [None]
